FAERS Safety Report 4863416-5 (Version None)
Quarter: 2005Q4

REPORT INFORMATION
  Report Type: 
  Country: None (occurrence: None)
  Receive Date: 20051222
  Receipt Date: 20041228
  Transmission Date: 20060501
  Serious: No
  Sender: FDA-Public Use
  Company Number: US-GLAXOSMITHKLINE-A0538560A

PATIENT
  Age: 43 Year
  Sex: Female

DRUGS (3)
  1. FLONASE [Suspect]
     Dosage: 50MCG SINGLE DOSE
     Route: 045
  2. IBUPROFEN [Concomitant]
  3. SYNTHROID [Concomitant]

REACTIONS (3)
  - DYSPNOEA [None]
  - HYPERSENSITIVITY [None]
  - PHARYNGEAL OEDEMA [None]
